FAERS Safety Report 11312027 (Version 3)
Quarter: 2015Q4

REPORT INFORMATION
  Report Type: Spontaneous
  Country: CA (occurrence: CA)
  Receive Date: 20150727
  Receipt Date: 20151015
  Transmission Date: 20160304
  Serious: Yes (Hospitalization)
  Sender: FDA-Public Use
  Company Number: CA-SA-2015SA109928

PATIENT
  Age: 34 Year
  Sex: Female
  Weight: 49.6 kg

DRUGS (6)
  1. THYMOGLOBULIN [Suspect]
     Active Substance: LAPINE T-LYMPHOCYTE IMMUNE GLOBULIN
     Dosage: CENTRAL ROUTE, POWDER FOR SOLUTION INTRAVENOUS
     Route: 042
     Dates: start: 20140906, end: 20140906
  2. THYMOGLOBULIN [Suspect]
     Active Substance: LAPINE T-LYMPHOCYTE IMMUNE GLOBULIN
     Dosage: CENTRAL ROUTE, POWDER FOR SOLUTION INTRAVENOUS
     Route: 042
     Dates: start: 20140908, end: 20140908
  3. THYMOGLOBULIN [Suspect]
     Active Substance: LAPINE T-LYMPHOCYTE IMMUNE GLOBULIN
     Dosage: CENTRAL ROUTE, POWDER FOR SOLUTION INTRAVENOUS
     Route: 042
     Dates: start: 20140910, end: 20140910
  4. THYMOGLOBULIN [Suspect]
     Active Substance: LAPINE T-LYMPHOCYTE IMMUNE GLOBULIN
     Dosage: PERIPHERAL ROUTE; PRE-OPERATIVE)?POWDER FOR SOLUTION INTRAVENOUS
     Route: 042
     Dates: start: 20140903, end: 20140903
  5. COUMADIN [Concomitant]
     Active Substance: WARFARIN SODIUM
  6. HEPARIN SODIUM. [Concomitant]
     Active Substance: HEPARIN SODIUM
     Dosage: SOLUTION INTRAVENOUS

REACTIONS (3)
  - Pulmonary embolism [Unknown]
  - Atrial fibrillation [Unknown]
  - Deep vein thrombosis [Unknown]

NARRATIVE: CASE EVENT DATE: 20140916
